FAERS Safety Report 4977782-3 (Version None)
Quarter: 2006Q2

REPORT INFORMATION
  Report Type: 
  Country: None (occurrence: None)
  Receive Date: 20060420
  Receipt Date: 20060222
  Transmission Date: 20061013
  Serious: Yes (Hospitalization)
  Sender: FDA-Public Use
  Company Number: DE-ABBOTT-06P-062-0325837-00

PATIENT
  Sex: Male
  Weight: 61 kg

DRUGS (13)
  1. ZEMPLAR [Suspect]
     Indication: RENAL CYST
     Route: 042
     Dates: start: 20060131
  2. ZEMPLAR [Suspect]
     Indication: HYPERPARATHYROIDISM
  3. ENOXAPARIN SODIUM [Concomitant]
     Indication: DRUG USE FOR UNKNOWN INDICATION
  4. METOPROLOL SUCCINATE [Concomitant]
     Indication: DRUG USE FOR UNKNOWN INDICATION
  5. VITARENAL [Concomitant]
     Indication: DRUG USE FOR UNKNOWN INDICATION
  6. SEVELAMER HYDROCHLORIDE [Concomitant]
     Indication: DRUG USE FOR UNKNOWN INDICATION
  7. LORMETAZEPAM [Concomitant]
     Indication: DRUG USE FOR UNKNOWN INDICATION
  8. MIMPARA [Concomitant]
     Indication: DRUG USE FOR UNKNOWN INDICATION
  9. BICALUTAMIDE [Concomitant]
     Indication: DRUG USE FOR UNKNOWN INDICATION
  10. ENALAPRIL MALEATE [Concomitant]
     Indication: DRUG USE FOR UNKNOWN INDICATION
  11. MAGALDRATE [Concomitant]
     Indication: DRUG USE FOR UNKNOWN INDICATION
  12. OMEPRAZOLE [Concomitant]
     Indication: DRUG USE FOR UNKNOWN INDICATION
  13. FERRIECIT [Concomitant]
     Indication: DRUG USE FOR UNKNOWN INDICATION

REACTIONS (2)
  - FEBRILE INFECTION [None]
  - SHUNT OCCLUSION [None]
